FAERS Safety Report 14295733 (Version 1)
Quarter: 2017Q4

REPORT INFORMATION
  Report Type: Spontaneous
  Country: US (occurrence: US)
  Receive Date: 20171215
  Receipt Date: 20171215
  Transmission Date: 20180321
  Serious: Yes (Other)
  Sender: FDA-Public Use
  Company Number: None

PATIENT
  Age: 61 Year
  Sex: Female

DRUGS (1)
  1. SUTENT [Suspect]
     Active Substance: SUNITINIB MALATE
     Indication: SOFT TISSUE SARCOMA
     Dosage: 1 CAPSULE DAILY FOR 2 WEEKS ON THEN 1 WEEK OFF ORAL
     Route: 048
     Dates: start: 20171010, end: 20171206

REACTIONS (2)
  - Hypersensitivity [None]
  - Lip swelling [None]

NARRATIVE: CASE EVENT DATE: 20171206
